FAERS Safety Report 6838971-6 (Version None)
Quarter: 2010Q3

REPORT INFORMATION
  Report Type: 
  Country: None (occurrence: None)
  Receive Date: 20100713
  Receipt Date: 20071211
  Transmission Date: 20110219
  Serious: Yes (Other)
  Sender: FDA-Public Use
  Company Number: US-PFIZER INC-2007046116

PATIENT
  Sex: Female
  Weight: 64.4 kg

DRUGS (8)
  1. CHANTIX [Suspect]
     Indication: SMOKING CESSATION THERAPY
     Dates: start: 20070425
  2. NEURONTIN [Concomitant]
  3. PREVACID [Concomitant]
  4. LAMICTAL [Concomitant]
  5. MOBIC [Concomitant]
  6. CYMBALTA [Concomitant]
  7. ZYRTEC [Concomitant]
  8. LYRICA [Concomitant]

REACTIONS (6)
  - ABNORMAL DREAMS [None]
  - CONFUSIONAL STATE [None]
  - DIARRHOEA [None]
  - NAUSEA [None]
  - OVERDOSE [None]
  - PAIN [None]
